FAERS Safety Report 6012517-7 (Version None)
Quarter: 2008Q4

REPORT INFORMATION
  Report Type: 
  Country: None (occurrence: None)
  Receive Date: 20081218
  Receipt Date: 20081216
  Transmission Date: 20090506
  Serious: Yes (Death, Life-Threatening, Hospitalization)
  Sender: FDA-Public Use
  Company Number: US-ROXANE LABORATORIES, INC.-2008-RO-00443RO

PATIENT
  Sex: Male
  Weight: 93 kg

DRUGS (11)
  1. PREDNISONE [Suspect]
     Indication: PROSTATE CANCER
     Dosage: 10MG
     Route: 048
     Dates: start: 20080704, end: 20081018
  2. SU-011,248 [Suspect]
     Indication: PROSTATE CANCER
     Dosage: 25MG
     Route: 048
     Dates: start: 20080704, end: 20081018
  3. TAXOTERE [Suspect]
     Indication: PROSTATE CANCER
     Route: 042
     Dates: start: 20080704, end: 20081010
  4. ADVAIR DISKUS 250/50 [Concomitant]
     Route: 048
     Dates: start: 19950101
  5. ACETYLSALICYLIC ACID [Concomitant]
     Route: 048
     Dates: start: 20000101
  6. CILOSTAZOL [Concomitant]
     Route: 048
     Dates: start: 19930101
  7. GLIPIZIDE [Concomitant]
     Route: 048
     Dates: start: 19930101
  8. LIPITOR [Concomitant]
     Route: 048
     Dates: start: 19930101
  9. LISINOPRIL [Concomitant]
     Route: 048
     Dates: start: 19930101
  10. MAGNESIUM OXIDE [Concomitant]
     Route: 048
     Dates: start: 20080407
  11. METFORMIN HCL [Concomitant]
     Route: 048
     Dates: start: 19930101

REACTIONS (3)
  - DEATH [None]
  - PNEUMONIA [None]
  - RENAL FAILURE [None]
